FAERS Safety Report 8938318 (Version 1)
Quarter: 2012Q4

REPORT INFORMATION
  Report Type: 
  Country: US (occurrence: US)
  Receive Date: 20121130
  Receipt Date: 20121130
  Transmission Date: 20130627
  Serious: Yes (Other)
  Sender: FDA-Public Use
  Company Number: US-CELGENEUS-163-21880-12113915

PATIENT
  Sex: Male
  Weight: 77.18 kg

DRUGS (2)
  1. REVLIMID [Suspect]
     Indication: ACUTE MYELOID LEUKEMIA
     Dosage: 5-10mg
     Route: 048
  2. REVLIMID [Suspect]
     Dosage: 5-10mg
     Route: 048

REACTIONS (1)
  - Deafness [Not Recovered/Not Resolved]
